FAERS Safety Report 4285122-0 (Version None)
Quarter: 2004Q1

REPORT INFORMATION
  Report Type: 
  Country: None (occurrence: None)
  Receive Date: 20040204
  Receipt Date: 20040123
  Transmission Date: 20041129
  Serious: Yes (Life-Threatening, Hospitalization)
  Sender: FDA-Public Use
  Company Number: ES-GLAXOSMITHKLINE-B0321034A

PATIENT
  Age: 66 Year
  Sex: Female

DRUGS (6)
  1. AUGMENTIN '125' [Suspect]
     Indication: PROPHYLAXIS
     Dosage: 3G THREE TIMES PER DAY
     Route: 042
     Dates: start: 20031121, end: 20031121
  2. ENOXAPARIN SODIUM [Concomitant]
     Indication: PROPHYLAXIS
     Dosage: 40MG PER DAY
     Dates: start: 20031121, end: 20031121
  3. SALBUTAMOL SULPHATE [Concomitant]
     Indication: ASTHMA
     Route: 065
  4. PHENTANYL [Concomitant]
     Dosage: 350MCG PER DAY
     Route: 042
     Dates: start: 20031121, end: 20031121
  5. PROPOFOL [Concomitant]
     Dosage: 130MG PER DAY
     Route: 042
     Dates: start: 20031121, end: 20031121
  6. CISATRACURIUM BESYLATE [Concomitant]
     Dosage: 20MG PER DAY
     Route: 042
     Dates: start: 20031121, end: 20031121

REACTIONS (1)
  - BRONCHOSPASM [None]
